FAERS Safety Report 5489538-6 (Version None)
Quarter: 2007Q4

REPORT INFORMATION
  Report Type: 
  Country: None (occurrence: None)
  Receive Date: 20071016
  Receipt Date: 20071016
  Transmission Date: 20080405
  Serious: Yes (Hospitalization)
  Sender: FDA-Public Use
  Company Number: None

PATIENT
  Age: 46 Year
  Sex: Male
  Weight: 83.099 kg

DRUGS (4)
  1. RITUXAN [Suspect]
     Indication: B-CELL SMALL LYMPHOCYTIC LYMPHOMA
     Dosage: 895MG X1 IV
     Route: 042
     Dates: start: 20070926, end: 20070926
  2. RITUXAN [Suspect]
     Indication: CHRONIC LYMPHOCYTIC LEUKAEMIA
     Dosage: 895MG X1 IV
     Route: 042
     Dates: start: 20070926, end: 20070926
  3. LISINOPRIL [Concomitant]
  4. XANAX [Concomitant]

REACTIONS (3)
  - ABDOMINAL PAIN [None]
  - FLUSHING [None]
  - INFUSION RELATED REACTION [None]
